FAERS Safety Report 15983076 (Version 2)
Quarter: 2019Q1

REPORT INFORMATION
  Report Type: Spontaneous
  Country: NL (occurrence: NL)
  Receive Date: 20190219
  Receipt Date: 20190318
  Transmission Date: 20190418
  Serious: Yes (Death, Hospitalization, Other)
  Sender: FDA-Public Use
  Company Number: NL-009507513-1902NLD006828

PATIENT
  Age: 64 Year
  Sex: Female

DRUGS (3)
  1. INFLIXIMAB [Concomitant]
     Active Substance: INFLIXIMAB
     Indication: HAEMOCHROMATOSIS
     Dosage: 3 MG/KG, UNK (ANTI-TNIF-ALPHA, INFUSION)
  2. IMIPENEM AND CILASTATIN [Suspect]
     Active Substance: CILASTATIN SODIUM\IMIPENEM
     Indication: ANTIBIOTIC THERAPY
  3. IMIPENEM AND CILASTATIN [Suspect]
     Active Substance: CILASTATIN SODIUM\IMIPENEM
     Dosage: UNK
     Dates: start: 2005

REACTIONS (2)
  - Drug ineffective [Fatal]
  - Sepsis [Fatal]
